FAERS Safety Report 24222926 (Version 1)
Quarter: 2024Q3

REPORT INFORMATION
  Report Type: Spontaneous
  Country: US (occurrence: None)
  Receive Date: 20240816
  Receipt Date: 20240816
  Transmission Date: 20241017
  Serious: Yes (unspecified)
  Sender: Public
  Company Number: None

PATIENT
  Age: 21 Year
  Sex: Female
  Weight: 103.95 kg

DRUGS (1)
  1. DEPO-PROVERA [Suspect]
     Active Substance: MEDROXYPROGESTERONE ACETATE
     Indication: Drug therapy
     Dates: start: 20120720, end: 20120920

REACTIONS (7)
  - Weight increased [None]
  - Polycystic ovarian syndrome [None]
  - Infertility [None]
  - Fatigue [None]
  - Stress [None]
  - Amnesia [None]
  - Refusal of treatment by patient [None]

NARRATIVE: CASE EVENT DATE: 20120720
